FAERS Safety Report 14338346 (Version 1)
Quarter: 2017Q4

REPORT INFORMATION
  Report Type: Report from Study
  Country: NL (occurrence: NL)
  Receive Date: 20171229
  Receipt Date: 20171229
  Transmission Date: 20180321
  Serious: Yes (Other)
  Sender: FDA-Public Use
  Company Number: NL-MYLANLABS-2017M1083419

PATIENT
  Age: 60 Year
  Sex: Male

DRUGS (3)
  1. MELPHALAN. [Suspect]
     Active Substance: MELPHALAN
     Indication: NEUROENDOCRINE CARCINOMA OF THE SKIN
     Dosage: AT A DOSE OF 10 MG/L EXTREMITY VOLUME
     Route: 050
  2. HEPARIN [Concomitant]
     Active Substance: HEPARIN SODIUM
     Indication: PRODUCT USED FOR UNKNOWN INDICATION
     Route: 050
  3. TUMOR NECROSIS FACTOR ALPHA (TNF-) INHIBITORS [Suspect]
     Active Substance: UNSPECIFIED INGREDIENT
     Indication: NEUROENDOCRINE CARCINOMA OF THE SKIN
     Dosage: UNK
     Route: 050

REACTIONS (2)
  - Erythema [Unknown]
  - Oedema [Unknown]
